APPROVED DRUG PRODUCT: MANNITOL 15% IN PLASTIC CONTAINER
Active Ingredient: MANNITOL
Strength: 15GM/100ML
Dosage Form/Route: INJECTABLE;INJECTION
Application: N020006 | Product #003 | TE Code: AP
Applicant: B BRAUN MEDICAL INC
Approved: Jul 26, 1993 | RLD: No | RS: No | Type: RX